FAERS Safety Report 4967186-1 (Version None)
Quarter: 2006Q2

REPORT INFORMATION
  Report Type: 
  Country: None (occurrence: None)
  Receive Date: 20060410
  Receipt Date: 20060315
  Transmission Date: 20061013
  Serious: Yes (Other)
  Sender: FDA-Public Use
  Company Number: 2006AP01543

PATIENT
  Age: 27049 Day
  Sex: Male
  Weight: 58.2 kg

DRUGS (7)
  1. ZOLADEX [Suspect]
     Indication: PROSTATE CANCER
     Route: 058
     Dates: start: 20051012, end: 20060207
  2. HARNAL D [Concomitant]
     Route: 048
  3. NIFELAT L [Concomitant]
     Route: 048
  4. GOSPER LEVER [Concomitant]
     Route: 048
  5. ASPIRIN [Concomitant]
     Route: 048
  6. EPADEL S [Concomitant]
     Route: 048
  7. NITOROL R [Concomitant]
     Route: 048

REACTIONS (3)
  - ALANINE AMINOTRANSFERASE INCREASED [None]
  - ASPARTATE AMINOTRANSFERASE INCREASED [None]
  - LIVER DISORDER [None]
